FAERS Safety Report 18840550 (Version 1)
Quarter: 2021Q1

REPORT INFORMATION
  Report Type: Spontaneous
  Country: JP (occurrence: JP)
  Receive Date: 20210203
  Receipt Date: 20210203
  Transmission Date: 20210419
  Serious: Yes (Death, Other)
  Sender: FDA-Public Use
  Company Number: JP-ADVANZ PHARMA-202101000627

PATIENT

DRUGS (6)
  1. L DOPA [Concomitant]
     Active Substance: LEVODOPA
     Dosage: 300 MG
     Route: 065
  2. DONEPEZIL. [Concomitant]
     Active Substance: DONEPEZIL
     Dosage: 5 MG, QD
     Route: 048
  3. DONEPEZIL. [Concomitant]
     Active Substance: DONEPEZIL
     Indication: DEMENTIA ALZHEIMER^S TYPE
     Dosage: 3 MG, QD
     Route: 048
  4. DONEPEZIL. [Concomitant]
     Active Substance: DONEPEZIL
     Dosage: 10 MG, QD
     Route: 048
  5. ZONISAMIDE. [Suspect]
     Active Substance: ZONISAMIDE
     Indication: PARKINSONISM
     Dosage: 25 MG, QD, ORODISPERSABLE TABLET, TRERIEF
     Route: 048
  6. L DOPA [Concomitant]
     Active Substance: LEVODOPA
     Indication: PARKINSON^S DISEASE
     Dosage: 150 MG, /8HOURS
     Route: 065

REACTIONS (1)
  - Respiration abnormal [Fatal]
